FAERS Safety Report 5738094-3 (Version None)
Quarter: 2008Q2

REPORT INFORMATION
  Report Type: 
  Country: None (occurrence: None)
  Receive Date: 20080509
  Receipt Date: 20070628
  Transmission Date: 20081010
  Serious: Yes (Hospitalization, Other)
  Sender: FDA-Public Use
  Company Number: PHEH2007US09371

PATIENT
  Age: 59 Year
  Sex: Male

DRUGS (3)
  1. TEGRETOL [Suspect]
     Indication: GRAND MAL CONVULSION
     Dosage: 1600 MG, QD, ORAL
     Route: 048
  2. KEPPRA [Concomitant]
  3. CYMBALTA [Concomitant]

REACTIONS (4)
  - BLOOD SODIUM DECREASED [None]
  - FALL [None]
  - HUMERUS FRACTURE [None]
  - INAPPROPRIATE ANTIDIURETIC HORMONE SECRETION [None]
